FAERS Safety Report 7754482-8 (Version None)
Quarter: 2011Q3

REPORT INFORMATION
  Report Type: 
  Country: None (occurrence: None)
  Receive Date: 20110915
  Receipt Date: 20110906
  Transmission Date: 20111222
  Serious: Yes (Hospitalization)
  Sender: FDA-Public Use
  Company Number: US-US-EMD SERONO, INC.-7081639

PATIENT
  Sex: Male
  Weight: 95 kg

DRUGS (3)
  1. MOTRIN [Concomitant]
     Indication: PREMEDICATION
  2. TYLENOL-500 [Concomitant]
     Indication: PREMEDICATION
  3. REBIF [Suspect]
     Indication: PRODUCT USED FOR UNKNOWN INDICATION
     Route: 058
     Dates: start: 20050719

REACTIONS (3)
  - PLATELET COUNT DECREASED [None]
  - ATRIAL FIBRILLATION [None]
  - INFLUENZA LIKE ILLNESS [None]
